FAERS Safety Report 10646094 (Version 1)
Quarter: 2014Q4

REPORT INFORMATION
  Report Type: Spontaneous
  Country: US (occurrence: None)
  Receive Date: 20141205
  Receipt Date: 20141205
  Transmission Date: 20150529
  Serious: Yes (Other)
  Sender: FDA-Public Use
  Company Number: 1000067014

PATIENT
  Age: 82 Year
  Sex: Male

DRUGS (2)
  1. NAMENDA [Suspect]
     Active Substance: MEMANTINE HYDROCHLORIDE
     Indication: BRAIN INJURY
     Dosage: 20 MG (10 MG,2 IN 1 D)
     Route: 048
     Dates: start: 20140211, end: 201404
  2. NAMENDA [Suspect]
     Active Substance: MEMANTINE HYDROCHLORIDE
     Indication: DEMENTIA
     Dosage: 20 MG (10 MG,2 IN 1 D)
     Route: 048
     Dates: start: 20140211, end: 201404

REACTIONS (2)
  - Confusional state [None]
  - Off label use [None]

NARRATIVE: CASE EVENT DATE: 20140211
